FAERS Safety Report 19697136 (Version 1)
Quarter: 2021Q3

REPORT INFORMATION
  Report Type: Spontaneous
  Country: US (occurrence: US)
  Receive Date: 20210813
  Receipt Date: 20210813
  Transmission Date: 20211014
  Serious: Yes (Hospitalization)
  Sender: FDA-Public Use
  Company Number: None

PATIENT
  Age: 69 Year
  Sex: Male
  Weight: 83.9 kg

DRUGS (1)
  1. TOPOTECAN [Suspect]
     Active Substance: TOPOTECAN HYDROCHLORIDE

REACTIONS (14)
  - Pulmonary hilum mass [None]
  - Hypertension [None]
  - Hypomagnesaemia [None]
  - Atrial fibrillation [None]
  - Tachypnoea [None]
  - Fatigue [None]
  - Hypovolaemia [None]
  - Pneumonia [None]
  - Sepsis [None]
  - Right ventricular dilatation [None]
  - Inappropriate antidiuretic hormone secretion [None]
  - Lactic acidosis [None]
  - Pericardial effusion [None]
  - Peripheral swelling [None]

NARRATIVE: CASE EVENT DATE: 20210405
